FAERS Safety Report 9400173 (Version 1)
Quarter: 2013Q3

REPORT INFORMATION
  Report Type: Spontaneous
  Country: IT (occurrence: IT)
  Receive Date: 20130715
  Receipt Date: 20130715
  Transmission Date: 20140515
  Serious: Yes (Other)
  Sender: FDA-Public Use
  Company Number: IT-SANOFI-AVENTIS-2013SA070470

PATIENT
  Age: 81 Year
  Sex: Male

DRUGS (12)
  1. CORDARONE [Suspect]
     Indication: CARDIOMYOPATHY
     Dosage: DOSE:1 UNIT(S)
     Route: 048
     Dates: start: 20130101, end: 20130613
  2. LASIX [Suspect]
     Indication: CARDIOMYOPATHY
     Dosage: DOSE:2 UNIT(S)
     Route: 048
     Dates: start: 20130401
  3. LASIX [Suspect]
     Indication: CARDIOMYOPATHY
     Route: 048
  4. XANAX [Suspect]
     Indication: ANXIETY
     Dosage: DOSE:2 UNIT(S)
     Route: 048
     Dates: start: 20130613, end: 20130613
  5. XANAX [Suspect]
     Indication: ANXIETY
     Route: 048
  6. COUMADIN [Concomitant]
     Dosage: DOSE:1 UNIT(S)
     Route: 048
  7. ISMO [Concomitant]
     Route: 048
  8. DILATREND [Concomitant]
     Route: 048
  9. SERETIDE [Concomitant]
     Route: 055
  10. TRITTICO [Concomitant]
     Route: 048
  11. ZYLORIC [Concomitant]
     Route: 048
  12. ENAPREN [Concomitant]
     Route: 048

REACTIONS (2)
  - Presyncope [Recovering/Resolving]
  - Blood pressure decreased [Recovering/Resolving]
